FAERS Safety Report 25509813 (Version 2)
Quarter: 2025Q3

REPORT INFORMATION
  Report Type: Spontaneous
  Country: US (occurrence: US)
  Receive Date: 20250703
  Receipt Date: 20250709
  Transmission Date: 20251020
  Serious: No
  Sender: BIOCON
  Company Number: US-BIOCON-BCN-2025-000205

PATIENT
  Sex: Female
  Weight: 57.61 kg

DRUGS (1)
  1. ATORVASTATIN [Suspect]
     Active Substance: ATORVASTATIN
     Indication: Blood cholesterol abnormal
     Dates: start: 2024

REACTIONS (3)
  - Dyspnoea [Unknown]
  - Therapeutic product effect incomplete [Unknown]
  - Recalled product administered [Unknown]
